FAERS Safety Report 5565359-0 (Version None)
Quarter: 2007Q4

REPORT INFORMATION
  Report Type: 
  Country: None (occurrence: None)
  Receive Date: 20071218
  Receipt Date: 20071207
  Transmission Date: 20080405
  Serious: Yes (Hospitalization, Other)
  Sender: FDA-Public Use
  Company Number: US-PFIZER INC-2007012302

PATIENT
  Sex: Female
  Weight: 56.7 kg

DRUGS (5)
  1. CORTEF [Suspect]
     Indication: ADDISON'S DISEASE
  2. KLOR-CON [Concomitant]
     Dosage: DAILY DOSE:16MEQ
  3. HYDROCHLOROTHIAZIDE [Concomitant]
     Dosage: DAILY DOSE:50MG
  4. FLORINEF [Concomitant]
  5. POTASSIUM CHLORIDE [Concomitant]

REACTIONS (8)
  - ABDOMINAL PAIN UPPER [None]
  - ADRENAL INSUFFICIENCY [None]
  - ASTHENIA [None]
  - BLOOD CHOLESTEROL INCREASED [None]
  - BREAST CANCER [None]
  - GASTROENTERITIS [None]
  - MUSCLE SPASMS [None]
  - VOMITING [None]
